FAERS Safety Report 10562956 (Version 1)
Quarter: 2014Q4

REPORT INFORMATION
  Report Type: Spontaneous
  Country: US (occurrence: US)
  Receive Date: 20141104
  Receipt Date: 20141104
  Transmission Date: 20150529
  Serious: Yes (Other)
  Sender: FDA-Public Use
  Company Number: US-ABBVIE-14P-163-1227302-00

PATIENT
  Age: 56 Year
  Sex: Female
  Weight: 62.65 kg

DRUGS (5)
  1. CLARITHROMYCIN. [Suspect]
     Active Substance: CLARITHROMYCIN
     Indication: BRONCHITIS BACTERIAL
     Dates: start: 201401
  2. CLARITHROMYCIN. [Interacting]
     Active Substance: CLARITHROMYCIN
     Indication: SINUSITIS
     Dates: start: 20140114
  3. CENTRUM SILVER [Concomitant]
     Active Substance: VITAMINS
     Indication: PRODUCT USED FOR UNKNOWN INDICATION
  4. ESTRACE [Concomitant]
     Active Substance: ESTRADIOL
     Indication: PRODUCT USED FOR UNKNOWN INDICATION
     Route: 067
  5. ESTROVEN [Interacting]
     Active Substance: DIETARY SUPPLEMENT
     Indication: MENOPAUSAL SYMPTOMS
     Route: 048
     Dates: end: 20140113

REACTIONS (3)
  - Insomnia [Recovered/Resolved]
  - Drug interaction [Recovered/Resolved]
  - Anxiety [Recovered/Resolved]

NARRATIVE: CASE EVENT DATE: 201401
